FAERS Safety Report 25701689 (Version 2)
Quarter: 2025Q3

REPORT INFORMATION
  Report Type: Report from Study
  Country: AR (occurrence: AR)
  Receive Date: 20250819
  Receipt Date: 20250924
  Transmission Date: 20251020
  Serious: Yes (Hospitalization, Other)
  Sender: JOHNSON AND JOHNSON
  Company Number: AR-JNJFOC-20250821297

PATIENT
  Age: 8 Decade
  Sex: Female
  Weight: 76 kg

DRUGS (1)
  1. SIMPONI [Suspect]
     Active Substance: GOLIMUMAB
     Indication: Rheumatoid arthritis
     Route: 058

REACTIONS (7)
  - Anaemia [Recovered/Resolved]
  - Myocardial infarction [Recovered/Resolved]
  - Angina pectoris [Recovered/Resolved]
  - Dehydration [Recovered/Resolved]
  - Blood pressure fluctuation [Recovered/Resolved]
  - Bronchitis [Unknown]
  - Gastrointestinal bacterial infection [Not Recovered/Not Resolved]

NARRATIVE: CASE EVENT DATE: 20240101
